FAERS Safety Report 4440746-2 (Version None)
Quarter: 2004Q3

REPORT INFORMATION
  Report Type: 
  Country: None (occurrence: None)
  Receive Date: 20040728
  Receipt Date: 20040504
  Transmission Date: 20050211
  Serious: No
  Sender: FDA-Public Use
  Company Number: USA031152196

PATIENT
  Age: 17 Year
  Sex: Female
  Weight: 67 kg

DRUGS (3)
  1. STRATTERA [Suspect]
     Indication: ATTENTION DEFICIT/HYPERACTIVITY DISORDER
     Dosage: 60 MG
     Dates: start: 20030701, end: 20031110
  2. CLARINEX [Concomitant]
  3. AZITHROMYCIN [Concomitant]

REACTIONS (1)
  - PROLONGED LABOUR [None]
